FAERS Safety Report 15225615 (Version 1)
Quarter: 2018Q3

REPORT INFORMATION
  Report Type: Spontaneous
  Country: US (occurrence: US)
  Receive Date: 20180801
  Receipt Date: 20180801
  Transmission Date: 20181010
  Serious: Yes (Other)
  Sender: FDA-Public Use
  Company Number: US-BIOVITRUM-2018US0906

PATIENT
  Age: 7 Year
  Sex: Female

DRUGS (9)
  1. BACTRIM [Suspect]
     Active Substance: SULFAMETHOXAZOLE\TRIMETHOPRIM
  2. ANAKINRA [Suspect]
     Active Substance: ANAKINRA
  3. PHENOXYMETHYLPENICILLIN [Suspect]
     Active Substance: PENICILLIN V
  4. PREDNISONE. [Suspect]
     Active Substance: PREDNISONE
  5. CEFUROXIME AXETIL. [Suspect]
     Active Substance: CEFUROXIME AXETIL
  6. CLINDAMYCIN. [Suspect]
     Active Substance: CLINDAMYCIN
  7. CICLOSPORIN [Suspect]
     Active Substance: CYCLOSPORINE
  8. TOCILIZUMAB. [Suspect]
     Active Substance: TOCILIZUMAB
  9. TOFACITINIB [Suspect]
     Active Substance: TOFACITINIB

REACTIONS (10)
  - Clubbing [Unknown]
  - Liver function test increased [Unknown]
  - Serum ferritin increased [Unknown]
  - Rash papular [Unknown]
  - Neutropenia [Unknown]
  - Vulval abscess [Unknown]
  - Pyrexia [Unknown]
  - Hypersensitivity [Recovering/Resolving]
  - Osteonecrosis [Unknown]
  - Pruritus [Unknown]

NARRATIVE: CASE EVENT DATE: 201409
